FAERS Safety Report 23696080 (Version 1)
Quarter: 2024Q2

REPORT INFORMATION
  Report Type: Spontaneous
  Country: US (occurrence: None)
  Receive Date: 20240402
  Receipt Date: 20240402
  Transmission Date: 20240716
  Serious: No
  Sender: FDA-Public Use
  Company Number: 2024A067371

PATIENT

DRUGS (1)
  1. SYMBICORT [Suspect]
     Active Substance: BUDESONIDE\FORMOTEROL FUMARATE DIHYDRATE
     Dosage: 160 UG, TWO TIMES A DAY
     Route: 055

REACTIONS (7)
  - Dyspnoea [Unknown]
  - Oropharyngeal pain [Unknown]
  - Incorrect dose administered [Unknown]
  - Device delivery system issue [Unknown]
  - Drug ineffective [Unknown]
  - Device use issue [Unknown]
  - Extra dose administered [Unknown]
